FAERS Safety Report 13681104 (Version 1)
Quarter: 2017Q2

REPORT INFORMATION
  Report Type: Spontaneous
  Country: US (occurrence: US)
  Receive Date: 20170623
  Receipt Date: 20170623
  Transmission Date: 20170830
  Serious: Yes (Other)
  Sender: FDA-Public Use
  Company Number: US-BEH-2017081423

PATIENT
  Age: 35 Year
  Sex: Female

DRUGS (2)
  1. HAEMATE P [Suspect]
     Active Substance: ANTIHEMOPHILIC FACTOR HUMAN
     Dosage: 3000 IU, DAILY FOR 3 DAYSUNK
     Route: 042
     Dates: start: 20170607
  2. HAEMATE P [Suspect]
     Active Substance: ANTIHEMOPHILIC FACTOR HUMAN
     Indication: VON WILLEBRAND^S DISEASE
     Dosage: 3000 IU, PRN
     Route: 042
     Dates: start: 20170119

REACTIONS (2)
  - Menorrhagia [Unknown]
  - Nausea [Unknown]

NARRATIVE: CASE EVENT DATE: 20170608
